FAERS Safety Report 21779114 (Version 2)
Quarter: 2022Q4

REPORT INFORMATION
  Report Type: Spontaneous
  Country: US (occurrence: US)
  Receive Date: 20221226
  Receipt Date: 20221229
  Transmission Date: 20230113
  Serious: No
  Sender: FDA-Public Use
  Company Number: US-SANOFI-01414427

PATIENT
  Age: 16 Year
  Sex: Male
  Weight: 90.71 kg

DRUGS (2)
  1. DUPIXENT [Suspect]
     Active Substance: DUPILUMAB
     Indication: Eczema
     Dosage: 300 MG QOW
     Route: 058
  2. DUPIXENT [Suspect]
     Active Substance: DUPILUMAB
     Indication: Dermatitis atopic

REACTIONS (4)
  - Eczema [Not Recovered/Not Resolved]
  - Drug dose omission by device [Unknown]
  - Device malfunction [Unknown]
  - Accidental exposure to product [Not Recovered/Not Resolved]
